FAERS Safety Report 9644561 (Version 1)
Quarter: 2013Q4

REPORT INFORMATION
  Report Type: Spontaneous
  Country: US (occurrence: US)
  Receive Date: 20131025
  Receipt Date: 20131025
  Transmission Date: 20140711
  Serious: Yes (Other)
  Sender: FDA-Public Use
  Company Number: US-ROCHE-1290738

PATIENT
  Sex: Female

DRUGS (27)
  1. NAPROXEN [Suspect]
     Indication: MUSCLE SPASMS
     Route: 065
     Dates: start: 2009
  2. NAPROXEN [Suspect]
     Indication: PAIN
  3. NAPROXEN [Suspect]
     Indication: FIBROMYALGIA
  4. LEVOTHYROXINE [Concomitant]
     Indication: THYROID FUNCTION TEST ABNORMAL
     Route: 065
  5. PLAQUENIL [Concomitant]
     Route: 065
  6. CELEXA (UNITED STATES) [Concomitant]
     Route: 065
  7. OMEPRAZOLE [Concomitant]
     Route: 065
  8. CETIRIZINE [Concomitant]
     Route: 065
  9. PREDNISONE [Concomitant]
     Route: 065
  10. NABUMETONE [Concomitant]
     Route: 065
  11. CYMBALTA [Concomitant]
     Route: 065
  12. GABAPENTIN [Concomitant]
     Dosage: 600MG
     Route: 065
  13. SKELAXIN [Concomitant]
     Route: 065
  14. NORTRIPTYLINE [Concomitant]
     Route: 065
  15. AMITRIPTYLINE [Concomitant]
     Route: 065
  16. ALBUTEROL NEBULIZER [Concomitant]
     Indication: ASTHMA
     Route: 065
  17. WELLBUTRIN [Concomitant]
  18. FLONASE [Concomitant]
     Route: 065
  19. SINGULAIR [Concomitant]
     Route: 065
  20. MELOXICAM [Concomitant]
     Indication: PAIN IN EXTREMITY
     Route: 065
  21. ALFA-TOCOPHEROL ACETATE [Concomitant]
     Route: 065
  22. PATANOL [Concomitant]
     Indication: EYE PRURITUS
  23. HYDROCORTISONE CREAM [Concomitant]
     Indication: HYPERSENSITIVITY
     Route: 065
  24. AZELASTINE [Concomitant]
     Indication: NASAL CONGESTION
     Route: 065
  25. AZELASTINE [Concomitant]
     Indication: RHINORRHOEA
  26. TRAMADOL [Concomitant]
     Route: 065
  27. VICODIN [Concomitant]
     Indication: PAIN

REACTIONS (23)
  - Hepatic failure [Not Recovered/Not Resolved]
  - Fibromyalgia [Not Recovered/Not Resolved]
  - Tendonitis [Unknown]
  - Protein urine present [Unknown]
  - Blood urine present [Unknown]
  - Headache [Unknown]
  - Sinusitis [Unknown]
  - Pain in extremity [Unknown]
  - Muscle rigidity [Unknown]
  - Drug ineffective [Unknown]
  - Paraesthesia [Unknown]
  - Eye pruritus [Unknown]
  - Lacrimation increased [Unknown]
  - Blister [Unknown]
  - Rhinorrhoea [Unknown]
  - Nasal congestion [Unknown]
  - Muscle spasms [Unknown]
  - Pain [Unknown]
  - Asthma [Unknown]
  - Blood immunoglobulin E increased [Unknown]
  - Mass [Unknown]
  - Ocular hyperaemia [Unknown]
  - Hypersensitivity [Unknown]
